FAERS Safety Report 8912746 (Version 2)
Quarter: 2012Q4

REPORT INFORMATION
  Report Type: 
  Country: FR (occurrence: FR)
  Receive Date: 20121116
  Receipt Date: 20121218
  Transmission Date: 20130627
  Serious: Yes (Hospitalization)
  Sender: FDA-Public Use
  Company Number: FR-PFIZER INC-2012283614

PATIENT
  Age: 80 Year
  Sex: Male

DRUGS (10)
  1. AMLOR [Suspect]
     Dosage: 10 mg
     Route: 048
     Dates: start: 20120607
  2. EUPANTOL [Suspect]
     Dosage: UNK
     Route: 048
     Dates: start: 20120604, end: 20120624
  3. BISOPROLOL [Suspect]
     Dosage: UNK
     Route: 048
     Dates: start: 20120612
  4. COUMADINE [Concomitant]
  5. INEXIUM [Concomitant]
  6. DIFFU K [Concomitant]
  7. MIANSERIN [Concomitant]
  8. CORTANCYL [Concomitant]
  9. ATARAX [Concomitant]
  10. ARANESP [Concomitant]

REACTIONS (1)
  - Agranulocytosis [Recovered/Resolved]
